FAERS Safety Report 14221879 (Version 1)
Quarter: 2017Q4

REPORT INFORMATION
  Report Type: Spontaneous
  Country: US (occurrence: US)
  Receive Date: 20171124
  Receipt Date: 20171124
  Transmission Date: 20180321
  Serious: No
  Sender: FDA-Public Use
  Company Number: US-ENDO PHARMACEUTICALS INC-2017-003026

PATIENT
  Sex: Male

DRUGS (2)
  1. VALPROIC ACID. [Suspect]
     Active Substance: VALPROIC ACID
     Indication: PRODUCT USED FOR UNKNOWN INDICATION
     Dosage: 1 TEASPOON IN THE MORNING AND 1 IN THE EVENING
     Route: 065
     Dates: start: 201701
  2. VALPROIC ACID. [Suspect]
     Active Substance: VALPROIC ACID
     Dosage: HALF TEASPOON IN MORNING AND HALF IN THE EVENING
     Route: 065

REACTIONS (4)
  - Erythema [Recovered/Resolved]
  - Sinusitis [Recovered/Resolved]
  - Photosensitivity reaction [Recovered/Resolved]
  - Temperature intolerance [Recovered/Resolved]
